FAERS Safety Report 8957847 (Version 1)
Quarter: 2012Q4

REPORT INFORMATION
  Report Type: 
  Country: US (occurrence: US)
  Receive Date: 20121211
  Receipt Date: 20121211
  Transmission Date: 20130627
  Serious: No
  Sender: FDA-Public Use
  Company Number: US-ABBOTT-12P-163-0992759-00

PATIENT
  Sex: Female

DRUGS (2)
  1. VICODIN ES [Suspect]
     Indication: MIGRAINE
     Dosage: 10 tablets in one day- Generic
     Route: 048
     Dates: start: 2011, end: 2011
  2. VICODIN ES [Suspect]
     Dosage: Brand name
     Dates: start: 2011

REACTIONS (1)
  - Drug ineffective [Recovered/Resolved]
